FAERS Safety Report 8628597 (Version 5)
Quarter: 2013Q1

REPORT INFORMATION
  Report Type: Report from Study
  Country: CA (occurrence: CA)
  Receive Date: 20120621
  Receipt Date: 20130204
  Transmission Date: 20140127
  Serious: Yes (Other)
  Sender: FDA-Public Use
  Company Number: CA-ROCHE-1078543

PATIENT
  Age: 55 Year
  Sex: Female
  Weight: 70 kg

DRUGS (8)
  1. ACTEMRA [Suspect]
     Indication: RHEUMATOID ARTHRITIS
     Route: 042
     Dates: start: 20111130
  2. ACTEMRA [Suspect]
     Route: 042
     Dates: start: 20120516
  3. ACTEMRA [Suspect]
     Route: 042
     Dates: start: 201204
  4. OXYCONTIN [Suspect]
     Indication: PRODUCT USED FOR UNKNOWN INDICATION
     Route: 048
     Dates: start: 20120610, end: 20120627
  5. CORTISONE [Concomitant]
     Route: 065
  6. METHOTREXATE [Concomitant]
     Route: 065
     Dates: start: 2002
  7. PLAQUENIL [Concomitant]
     Route: 048
     Dates: start: 2002
  8. LYRICA [Concomitant]
     Route: 048
     Dates: start: 201204

REACTIONS (6)
  - Transient ischaemic attack [Unknown]
  - Arthralgia [Not Recovered/Not Resolved]
  - Weight decreased [Not Recovered/Not Resolved]
  - Lung infection [Not Recovered/Not Resolved]
  - Ataxia [Unknown]
  - Dysarthria [Unknown]
